FAERS Safety Report 13820991 (Version 1)
Quarter: 2017Q3

REPORT INFORMATION
  Report Type: Spontaneous
  Country: US (occurrence: US)
  Receive Date: 20170801
  Receipt Date: 20170801
  Transmission Date: 20171127
  Serious: No
  Sender: FDA-Public Use
  Company Number: US-TEVA-727989ACC

PATIENT
  Sex: Female
  Weight: 68.1 kg

DRUGS (2)
  1. LORAZEPAM. [Suspect]
     Active Substance: LORAZEPAM
     Indication: PANIC ATTACK
  2. LORAZEPAM. [Suspect]
     Active Substance: LORAZEPAM
     Indication: ANXIETY
     Dosage: 1 MILLIGRAM DAILY;
     Dates: start: 2016

REACTIONS (3)
  - Hypokinesia [Unknown]
  - Drug ineffective [Unknown]
  - Retching [Unknown]
